FAERS Safety Report 7563846-7 (Version None)
Quarter: 2011Q2

REPORT INFORMATION
  Report Type: 
  Country: None (occurrence: None)
  Receive Date: 20110622
  Receipt Date: 20110616
  Transmission Date: 20111010
  Serious: Yes (Other)
  Sender: FDA-Public Use
  Company Number: US-PFIZER INC-2011069795

PATIENT
  Sex: Female

DRUGS (12)
  1. ALBUTEROL SULFATE AUTOHALER [Concomitant]
     Indication: CHEST DISCOMFORT
  2. PLAVIX [Concomitant]
     Indication: CEREBROVASCULAR ACCIDENT PROPHYLAXIS
     Dosage: UNK
     Dates: start: 20070101
  3. ZOCOR [Concomitant]
     Indication: BLOOD CHOLESTEROL INCREASED
     Dosage: UNK
     Dates: start: 20070101
  4. CHANTIX [Suspect]
     Dosage: STARTER PACK, 1 MG
     Dates: start: 20090324, end: 20090601
  5. ATENOLOL [Concomitant]
     Indication: HYPERTENSION
     Dosage: UNK
     Dates: start: 20070101
  6. CLONAZEPAM [Concomitant]
     Indication: MAJOR DEPRESSION
     Dosage: UNK
     Dates: start: 20030101, end: 20100101
  7. ZOLPIDEM [Concomitant]
     Indication: INSOMNIA
     Dosage: UNK
     Dates: start: 20070101
  8. CHANTIX [Suspect]
     Indication: SMOKING CESSATION THERAPY
     Dosage: STARTER PACK, 1 MG
     Dates: start: 20060816, end: 20060819
  9. ALBUTEROL SULFATE AUTOHALER [Concomitant]
     Indication: DYSPNOEA
  10. ALBUTEROL SULFATE AUTOHALER [Concomitant]
     Indication: WHEEZING
     Dosage: UNK
     Dates: start: 20050101
  11. TRAZODONE [Concomitant]
     Indication: MAJOR DEPRESSION
     Dosage: UNK
     Dates: start: 20080101
  12. PLAVIX [Concomitant]
     Indication: CARDIOVASCULAR EVENT PROPHYLAXIS

REACTIONS (5)
  - MENTAL DISORDER [None]
  - ANXIETY [None]
  - MAJOR DEPRESSION [None]
  - AGGRESSION [None]
  - COGNITIVE DISORDER [None]
